FAERS Safety Report 17080307 (Version 1)
Quarter: 2019Q4

REPORT INFORMATION
  Report Type: Report from Study
  Country: AU (occurrence: AU)
  Receive Date: 20191127
  Receipt Date: 20191127
  Transmission Date: 20200122
  Serious: Yes (Other)
  Sender: FDA-Public Use
  Company Number: AU-EMD SERONO-9130325

PATIENT
  Age: 86 Year
  Sex: Male

DRUGS (2)
  1. PREDNISONE. [Concomitant]
     Active Substance: PREDNISONE
     Indication: POLYMYALGIA RHEUMATICA
  2. AVELUMAB [Suspect]
     Active Substance: AVELUMAB
     Indication: NEUROENDOCRINE CARCINOMA OF THE SKIN
     Dates: start: 201903

REACTIONS (2)
  - Chills [Unknown]
  - Herpes zoster [Unknown]

NARRATIVE: CASE EVENT DATE: 2019
